FAERS Safety Report 18249154 (Version 1)
Quarter: 2020Q3

REPORT INFORMATION
  Report Type: Spontaneous
  Country: US (occurrence: US)
  Receive Date: 20200909
  Receipt Date: 20200909
  Transmission Date: 20201103
  Serious: No
  Sender: FDA-Public Use
  Company Number: US-UNICHEM PHARMACEUTICALS (USA) INC-UCM202008-000879

PATIENT
  Sex: Female

DRUGS (1)
  1. BISOPROLOL FUMARATE. [Suspect]
     Active Substance: BISOPROLOL FUMARATE
     Indication: HYPERTENSION
     Dosage: HALF TABLET IN MORNING AND HALF AT NIGHT

REACTIONS (4)
  - Wrong technique in product usage process [Unknown]
  - Throat irritation [Unknown]
  - Dysphagia [Unknown]
  - Cough [Unknown]
